FAERS Safety Report 8505442-0 (Version None)
Quarter: 2012Q3

REPORT INFORMATION
  Report Type: 
  Country: None (occurrence: None)
  Receive Date: 20120712
  Receipt Date: 20120709
  Transmission Date: 20120928
  Serious: Yes (Other)
  Sender: FDA-Public Use
  Company Number: US-PFIZER INC-2012089338

PATIENT
  Sex: Male

DRUGS (3)
  1. LYRICA [Suspect]
     Indication: HYPOAESTHESIA
     Dosage: 100 MG, UNK
     Route: 048
  2. LYRICA [Suspect]
     Indication: MONOPLEGIA
     Dosage: UNK
     Route: 048
  3. NEURONTIN [Suspect]
     Dosage: UNK

REACTIONS (11)
  - DYSPNOEA [None]
  - DYSSTASIA [None]
  - ACTIVITIES OF DAILY LIVING IMPAIRED [None]
  - JOINT RANGE OF MOTION DECREASED [None]
  - DRUG EFFECT DECREASED [None]
  - SPEECH DISORDER [None]
  - HYPOAESTHESIA [None]
  - GAIT DISTURBANCE [None]
  - EATING DISORDER [None]
  - MUSCULOSKELETAL STIFFNESS [None]
  - HEADACHE [None]
